FAERS Safety Report 6252006-8 (Version None)
Quarter: 2009Q2

REPORT INFORMATION
  Report Type: 
  Country: None (occurrence: None)
  Receive Date: 20090630
  Receipt Date: 20060817
  Transmission Date: 20091009
  Serious: Yes (Hospitalization)
  Sender: FDA-Public Use
  Company Number: US-ROCHE-638538

PATIENT
  Sex: Male

DRUGS (17)
  1. ENFUVIRTIDE [Suspect]
     Route: 065
     Dates: start: 20050328, end: 20061214
  2. ENFUVIRTIDE [Suspect]
     Route: 065
     Dates: start: 20070206, end: 20080814
  3. APTIVUS [Concomitant]
     Dates: start: 20021216, end: 20060801
  4. NORVIR [Concomitant]
     Dates: start: 20021216, end: 20060801
  5. NORVIR [Concomitant]
     Dates: start: 20060801, end: 20061214
  6. NORVIR [Concomitant]
     Dates: start: 20070206, end: 20080814
  7. TRUVADA [Concomitant]
     Dosage: FREQUENCY: QD.
     Dates: start: 20050328, end: 20060801
  8. EPIVIR [Concomitant]
     Dosage: FREQUENCY: QD.
     Dates: start: 20060801, end: 20061214
  9. EPIVIR [Concomitant]
     Dosage: FREQUENCY: QD.
     Dates: start: 20070206, end: 20080226
  10. PREZISTA [Concomitant]
     Dates: start: 20060801, end: 20061214
  11. PREZISTA [Concomitant]
     Dates: start: 20070206, end: 20080814
  12. ZIAGEN [Concomitant]
     Dosage: FREQUENCY: QD.
     Dates: start: 20060801, end: 20061214
  13. ZIAGEN [Concomitant]
     Dosage: FREQUENCY: QD.
     Dates: start: 20070206, end: 20080226
  14. ISENTRESS [Concomitant]
     Dates: start: 20071106, end: 20080814
  15. ETRAVIRINE [Concomitant]
     Dosage: DRUG NAME: INTELENCE.
     Dates: start: 20080226, end: 20080814
  16. LEVAQUIN [Concomitant]
     Dosage: FREQUENCY: QD.
     Dates: start: 20070308, end: 20070318
  17. DICLOXACILLIN [Concomitant]
     Dates: start: 20070320, end: 20070101

REACTIONS (5)
  - CATHETER RELATED INFECTION [None]
  - HIV INFECTION [None]
  - RENAL FAILURE ACUTE [None]
  - RENAL TUBULAR NECROSIS [None]
  - TUBULOINTERSTITIAL NEPHRITIS [None]
